FAERS Safety Report 16094303 (Version 1)
Quarter: 2019Q2

REPORT INFORMATION
  Report Type: Spontaneous
  Country: US (occurrence: US)
  Receive Date: 20190319
  Receipt Date: 20190319
  Transmission Date: 20190711
  Serious: Yes (Other)
  Sender: FDA-Public Use
  Company Number: None

PATIENT
  Age: 6 Year
  Sex: Male

DRUGS (4)
  1. OSELTAMIVIR PHOSPHATE. [Suspect]
     Active Substance: OSELTAMIVIR PHOSPHATE
     Indication: INFLUENZA
     Dosage: ?          QUANTITY:10 ML;?
     Route: 048
     Dates: start: 20190318, end: 20190319
  2. MULTIVITAMIN [Concomitant]
     Active Substance: VITAMINS
  3. CULTURELLE [Concomitant]
     Active Substance: LACTOBACILLUS RHAMNOSUS
  4. PROBIOTIC [Concomitant]
     Active Substance: PROBIOTICS NOS

REACTIONS (5)
  - Feeling abnormal [None]
  - Autoscopy [None]
  - Pruritus [None]
  - Staring [None]
  - Hallucination [None]

NARRATIVE: CASE EVENT DATE: 20190319
